FAERS Safety Report 6705217-9 (Version None)
Quarter: 2010Q2

REPORT INFORMATION
  Report Type: 
  Country: None (occurrence: None)
  Receive Date: 20100430
  Receipt Date: 20100301
  Transmission Date: 20101027
  Serious: No
  Sender: FDA-Public Use
  Company Number: US-ASTRAZENECA-2010SE08762

PATIENT
  Sex: Female

DRUGS (1)
  1. NEXIUM [Suspect]
     Indication: HELICOBACTER GASTRITIS
     Route: 048
     Dates: start: 20091101

REACTIONS (2)
  - INCREASED UPPER AIRWAY SECRETION [None]
  - PHARYNGEAL ERYTHEMA [None]
